FAERS Safety Report 8222267-4 (Version None)
Quarter: 2012Q1

REPORT INFORMATION
  Report Type: 
  Country: None (occurrence: None)
  Receive Date: 20120320
  Receipt Date: 20120312
  Transmission Date: 20120608
  Serious: Yes (Death, Hospitalization)
  Sender: FDA-Public Use
  Company Number: US-GLAXOSMITHKLINE-A0967906A

PATIENT
  Age: 76 Year
  Sex: Male
  Weight: 90 kg

DRUGS (12)
  1. METOPROLOL SUCCINATE [Concomitant]
  2. FUROSEMIDE [Concomitant]
  3. WARFARIN SODIUM [Concomitant]
  4. ASPIRIN [Concomitant]
  5. OXYGEN [Concomitant]
  6. TAMSULOSIN HCL [Concomitant]
  7. TYLENOL [Concomitant]
  8. NEXIUM [Concomitant]
  9. FLOLAN [Suspect]
     Indication: ESSENTIAL HYPERTENSION
     Dates: start: 20111026, end: 20120306
  10. REVATIO [Concomitant]
  11. PLAVIX [Concomitant]
  12. PREDNISONE TAB [Concomitant]

REACTIONS (3)
  - RESPIRATORY FAILURE [None]
  - DYSPNOEA [None]
  - DRUG INEFFECTIVE [None]
